FAERS Safety Report 18032985 (Version 1)
Quarter: 2020Q3

REPORT INFORMATION
  Report Type: Spontaneous
  Country: US (occurrence: US)
  Receive Date: 20200716
  Receipt Date: 20200716
  Transmission Date: 20201103
  Serious: No
  Sender: FDA-Public Use
  Company Number: US-SA-2020SA183245

PATIENT

DRUGS (2)
  1. MULTIVITAMINS [VITAMINS NOS] [Concomitant]
     Active Substance: VITAMINS
  2. DUPIXENT [Suspect]
     Active Substance: DUPILUMAB
     Indication: DERMATITIS ATOPIC
     Dosage: 600 MG, 1X
     Route: 058
     Dates: start: 202007, end: 202007

REACTIONS (6)
  - Pruritus [Unknown]
  - Skin exfoliation [Unknown]
  - Eczema [Unknown]
  - Skin fissures [Unknown]
  - Dry skin [Unknown]
  - Skin weeping [Unknown]

NARRATIVE: CASE EVENT DATE: 202007
